FAERS Safety Report 9245684 (Version 1)
Quarter: 2013Q1

REPORT INFORMATION
  Report Type: Spontaneous
  Country: US (occurrence: None)
  Receive Date: 20121130
  Receipt Date: 20121130
  Transmission Date: 20140127
  Serious: No
  Sender: FDA-Public Use
  Company Number: 1203USA03547

PATIENT
  Sex: 0

DRUGS (1)
  1. FOSAMAX [Suspect]
     Route: 048
     Dates: start: 20120325, end: 20120325

REACTIONS (3)
  - Overdose [None]
  - Inappropriate schedule of drug administration [None]
  - No adverse event [None]
